FAERS Safety Report 20111709 (Version 1)
Quarter: 2021Q4

REPORT INFORMATION
  Report Type: Spontaneous
  Country: US (occurrence: US)
  Receive Date: 20211125
  Receipt Date: 20211125
  Transmission Date: 20220303
  Serious: No
  Sender: FDA-Public Use
  Company Number: MIQ-09162021-1557

PATIENT

DRUGS (3)
  1. IVERMECTIN [Suspect]
     Active Substance: IVERMECTIN
     Indication: Acarodermatitis
     Dosage: UNK
     Route: 048
     Dates: start: 202106, end: 2021
  2. IVERMECTIN [Suspect]
     Active Substance: IVERMECTIN
     Dosage: UNK
     Route: 048
     Dates: start: 2021
  3. PERMETHRIN [Concomitant]
     Active Substance: PERMETHRIN
     Indication: Acarodermatitis
     Dosage: UNK
     Route: 061
     Dates: start: 202106

REACTIONS (1)
  - Drug ineffective for unapproved indication [Unknown]

NARRATIVE: CASE EVENT DATE: 20210601
